FAERS Safety Report 8361823-X (Version None)
Quarter: 2012Q2

REPORT INFORMATION
  Report Type: 
  Country: None (occurrence: None)
  Receive Date: 20120515
  Receipt Date: 20120504
  Transmission Date: 20120825
  Serious: Yes (Hospitalization)
  Sender: FDA-Public Use
  Company Number: FR-GLAXOSMITHKLINE-B0799609A

PATIENT
  Sex: Female

DRUGS (8)
  1. HEPARIN [Concomitant]
     Dates: end: 20120101
  2. PAROXETINE [Concomitant]
     Dosage: 20MG PER DAY
     Route: 048
  3. MODOPAR [Concomitant]
     Route: 048
  4. ARIXTRA [Suspect]
     Indication: PULMONARY EMBOLISM
     Dosage: 7.5MG PER DAY
     Route: 058
     Dates: start: 20120218, end: 20120328
  5. ISRADIPINE [Concomitant]
     Dosage: 2.5MG PER DAY
     Route: 048
  6. ACETAMINOPHEN [Concomitant]
     Dosage: 1G THREE TIMES PER DAY
     Route: 048
  7. LASIX [Concomitant]
     Dosage: 60MG PER DAY
     Route: 048
  8. POTASSIUM CHLORIDE [Concomitant]
     Route: 048

REACTIONS (3)
  - RED BLOOD CELL COUNT DECREASED [None]
  - INCORRECT DRUG ADMINISTRATION DURATION [None]
  - EPISTAXIS [None]
